FAERS Safety Report 8140279-6 (Version None)
Quarter: 2012Q1

REPORT INFORMATION
  Report Type: 
  Country: None (occurrence: None)
  Receive Date: 20120216
  Receipt Date: 20120202
  Transmission Date: 20120608
  Serious: Yes (Life-Threatening, Hospitalization, Other)
  Sender: FDA-Public Use
  Company Number: DE-RANBAXY-2012RR-52490

PATIENT
  Age: 78 Year
  Sex: Female
  Weight: 76 kg

DRUGS (2)
  1. CEFUROXIME [Suspect]
     Indication: SKIN ULCER
     Dosage: UNK
     Route: 065
     Dates: start: 20110930, end: 20110930
  2. CIPROFLOXACIN [Suspect]
     Indication: SKIN ULCER
     Dosage: 500-1000 MG/DAY
     Route: 048
     Dates: start: 20110930, end: 20111004

REACTIONS (1)
  - RENAL FAILURE ACUTE [None]
